FAERS Safety Report 17802160 (Version 1)
Quarter: 2020Q2

REPORT INFORMATION
  Report Type: Spontaneous
  Country: US (occurrence: US)
  Receive Date: 20200518
  Receipt Date: 20200518
  Transmission Date: 20200714
  Serious: No
  Sender: FDA-Public Use
  Company Number: None

PATIENT
  Age: 33 Year
  Sex: Female
  Weight: 54 kg

DRUGS (3)
  1. IRON [Concomitant]
     Active Substance: IRON
  2. MULTI VITAMIN [Concomitant]
     Active Substance: VITAMINS
  3. ELURYNG [Suspect]
     Active Substance: ETHINYL ESTRADIOL\ETONOGESTREL
     Indication: PRODUCT SUBSTITUTION

REACTIONS (6)
  - Diarrhoea [None]
  - Dizziness [None]
  - Asthenia [None]
  - Vaginal discharge [None]
  - Product substitution issue [None]
  - Insurance issue [None]

NARRATIVE: CASE EVENT DATE: 20200517
